FAERS Safety Report 18573621 (Version 1)
Quarter: 2020Q4

REPORT INFORMATION
  Report Type: Spontaneous
  Country: US (occurrence: US)
  Receive Date: 20201203
  Receipt Date: 20201203
  Transmission Date: 20210114
  Serious: Yes (Other)
  Sender: FDA-Public Use
  Company Number: NVSC2020US319907

PATIENT
  Age: 77 Year
  Sex: Male

DRUGS (1)
  1. TRIAMCINOLONE [Suspect]
     Active Substance: TRIAMCINOLONE
     Indication: MACULAR FIBROSIS
     Dosage: UNK
     Route: 031

REACTIONS (4)
  - Eye infection toxoplasmal [Recovering/Resolving]
  - Blindness [Unknown]
  - Product use in unapproved indication [Unknown]
  - Vitreous floaters [Unknown]
